FAERS Safety Report 15711094 (Version 1)
Quarter: 2018Q4

REPORT INFORMATION
  Report Type: Spontaneous
  Country: HK (occurrence: HK)
  Receive Date: 20181211
  Receipt Date: 20181211
  Transmission Date: 20190205
  Serious: Yes (Death, Other)
  Sender: FDA-Public Use
  Company Number: PHHY2018HK180824

PATIENT
  Age: 60 Year
  Sex: Female

DRUGS (4)
  1. DABRAFENIB [Suspect]
     Active Substance: DABRAFENIB
     Indication: GLIOBLASTOMA MULTIFORME
     Dosage: UNK
     Route: 065
     Dates: start: 20180412, end: 20180510
  2. TRAMETINIB [Suspect]
     Active Substance: TRAMETINIB
     Indication: GLIOBLASTOMA MULTIFORME
     Dosage: UNK
     Route: 065
     Dates: start: 20180412, end: 20180510
  3. TRAMETINIB [Suspect]
     Active Substance: TRAMETINIB
     Indication: LI-FRAUMENI SYNDROME
  4. DABRAFENIB [Suspect]
     Active Substance: DABRAFENIB
     Indication: LI-FRAUMENI SYNDROME

REACTIONS (2)
  - Product use in unapproved indication [Unknown]
  - Condition aggravated [Fatal]

NARRATIVE: CASE EVENT DATE: 201805
